FAERS Safety Report 8037503-7 (Version None)
Quarter: 2012Q1

REPORT INFORMATION
  Report Type: 
  Country: None (occurrence: None)
  Receive Date: 20120111
  Receipt Date: 20120109
  Transmission Date: 20120608
  Serious: Yes (Life-Threatening, Hospitalization, Other)
  Sender: FDA-Public Use
  Company Number: FR-PFIZER INC-2011244347

PATIENT
  Age: 77 Year
  Sex: Female
  Weight: 62.5 kg

DRUGS (9)
  1. ATORVASTATIN CALCIUM [Suspect]
     Dosage: UNK
     Dates: start: 20110929
  2. PLAVIX [Suspect]
     Indication: THROMBOSIS PROPHYLAXIS
     Dosage: UNK
     Dates: start: 20110908
  3. ASPIRIN [Concomitant]
     Dosage: UNK
     Dates: start: 20110901
  4. ZANTAC [Concomitant]
     Dosage: UNK
     Dates: start: 20110901, end: 20110901
  5. ACETAMINOPHEN [Concomitant]
     Dosage: UNK
     Dates: start: 20110901, end: 20110927
  6. BISOPROLOL FUMARATE [Concomitant]
     Dosage: UNK
     Dates: start: 20110901, end: 20110927
  7. RABEPRAZOLE SODIUM [Suspect]
     Dosage: UNK
     Dates: start: 20110901, end: 20110927
  8. ATORVASTATIN CALCIUM [Suspect]
     Dosage: UNK
     Dates: start: 20110901, end: 20110927
  9. VALSARTAN [Suspect]
     Indication: HYPERTENSION
     Dosage: UNK
     Dates: start: 20110901, end: 20110927

REACTIONS (9)
  - DYSPHAGIA [None]
  - OEDEMA [None]
  - HYPOTENSION [None]
  - URTICARIA [None]
  - NEUTROPHIL COUNT INCREASED [None]
  - NAUSEA [None]
  - CHEST PAIN [None]
  - DYSPNOEA [None]
  - DIARRHOEA [None]
